FAERS Safety Report 24646756 (Version 1)
Quarter: 2024Q4

REPORT INFORMATION
  Report Type: Spontaneous
  Country: US (occurrence: None)
  Receive Date: 20241120
  Receipt Date: 20241120
  Transmission Date: 20250114
  Serious: Yes (Death)
  Sender: Public
  Company Number: None

PATIENT
  Age: 76 Year
  Sex: Male

DRUGS (1)
  1. LENALIDOMIDE [Suspect]
     Active Substance: LENALIDOMIDE
     Indication: Plasma cell myeloma
     Dosage: 25MG QD ORAL
     Route: 048
     Dates: start: 20240502, end: 20240906

REACTIONS (7)
  - Renal failure [None]
  - Pneumonia [None]
  - Acute respiratory distress syndrome [None]
  - Liver function test abnormal [None]
  - Pseudomonas test positive [None]
  - Proteus test positive [None]
  - Oxygen saturation decreased [None]

NARRATIVE: CASE EVENT DATE: 20240906
